FAERS Safety Report 4505585-2 (Version None)
Quarter: 2004Q4

REPORT INFORMATION
  Report Type: 
  Country: None (occurrence: None)
  Receive Date: 20041018
  Receipt Date: 20040721
  Transmission Date: 20050328
  Serious: No
  Sender: FDA-Public Use
  Company Number: 207980

PATIENT
  Age: 60 Year
  Sex: Female
  Weight: 63.5 kg

DRUGS (1)
  1. XOLAIR [Suspect]
     Dosage: 225 MG Q2W, SUBCUTANEOUS
     Route: 058
     Dates: start: 20040101

REACTIONS (1)
  - RASH PAPULAR [None]
